FAERS Safety Report 17356480 (Version 2)
Quarter: 2020Q1

REPORT INFORMATION
  Report Type: Report from Study
  Country: KR (occurrence: KR)
  Receive Date: 20200131
  Receipt Date: 20200210
  Transmission Date: 20200409
  Serious: Yes (Life-Threatening, Hospitalization)
  Sender: FDA-Public Use
  Company Number: KR-BRISTOL-MYERS SQUIBB COMPANY-BMS-2020-008280

PATIENT
  Age: 56 Year
  Sex: Male
  Weight: 56 kg

DRUGS (11)
  1. DUPHALAC EASY [Concomitant]
     Active Substance: LACTULOSE
     Indication: CONSTIPATION
     Dosage: 15 MILLILITER, QD
     Route: 048
     Dates: start: 20200114, end: 20200120
  2. FEROBA YOU [Concomitant]
     Indication: ANAEMIA
     Dosage: 256 MILLIGRAM, BID
     Route: 048
     Dates: start: 20200114, end: 20200120
  3. HARMONILAN [Concomitant]
     Indication: PRODUCT USED FOR UNKNOWN INDICATION
     Dosage: 250 MILLIGRAM, TID
     Route: 048
     Dates: start: 20200117
  4. IRCODON [Concomitant]
     Active Substance: OXYCODONE HYDROCHLORIDE
     Indication: PROCTALGIA
     Dosage: 10 MILLIGRAM
     Route: 048
     Dates: start: 20191119
  5. POLYBUTIN [TRIMEBUTINE] [Concomitant]
     Indication: DECREASED APPETITE
     Dosage: 100 MILLIGRAM, TID
     Route: 048
     Dates: start: 20191119, end: 20200120
  6. NIVOLUMAB [Suspect]
     Active Substance: NIVOLUMAB
     Indication: NEOPLASM
     Dosage: 177.9 MILLIGRAM, Q2WK
     Route: 042
     Dates: start: 20190910, end: 20200114
  7. MEGACE F [Concomitant]
     Indication: DECREASED APPETITE
     Dosage: UNK
     Route: 048
     Dates: start: 20190716, end: 20200120
  8. MACPERAN [Concomitant]
     Active Substance: METOCLOPRAMIDE HYDROCHLORIDE
     Indication: DECREASED APPETITE
     Dosage: 5 MILLIGRAM, TID
     Route: 048
     Dates: start: 20191008, end: 20200120
  9. ENCOVER [Concomitant]
     Indication: PRODUCT USED FOR UNKNOWN INDICATION
     Dosage: 200 MILLILITER, BID
     Route: 048
     Dates: start: 20191119, end: 20200120
  10. CITACIN [Concomitant]
     Indication: URINARY TRACT INFECTION
     Dosage: 250 MILLIGRAM, BID
     Route: 048
     Dates: start: 20200117, end: 20200120
  11. TARGIN [Concomitant]
     Active Substance: NALOXONE HYDROCHLORIDE\OXYCODONE HYDROCHLORIDE
     Indication: ABDOMINAL PAIN
     Dosage: 10/5 MG
     Route: 048
     Dates: start: 20191119

REACTIONS (1)
  - Asthenia [Not Recovered/Not Resolved]

NARRATIVE: CASE EVENT DATE: 20200120
